FAERS Safety Report 10253410 (Version 6)
Quarter: 2014Q3

REPORT INFORMATION
  Report Type: Spontaneous
  Country: JP (occurrence: JP)
  Receive Date: 20140623
  Receipt Date: 20140929
  Transmission Date: 20150326
  Serious: Yes (Hospitalization, Other)
  Sender: FDA-Public Use
  Company Number: PHHY2014JP077010

PATIENT
  Age: 70 Year
  Sex: Male

DRUGS (4)
  1. GLIVEC [Concomitant]
     Active Substance: IMATINIB MESYLATE
     Dosage: 500 MG, DAILY
     Route: 048
  2. TASIGNA [Suspect]
     Active Substance: NILOTINIB
     Route: 048
  3. TASIGNA [Suspect]
     Active Substance: NILOTINIB
     Indication: CHRONIC MYELOID LEUKAEMIA
     Dosage: 600 MG, DAILY
     Route: 048
     Dates: start: 201301
  4. GLIVEC [Concomitant]
     Active Substance: IMATINIB MESYLATE
     Route: 048

REACTIONS (7)
  - Pleural mesothelioma [Unknown]
  - Oedema peripheral [Unknown]
  - Pleural effusion [Recovering/Resolving]
  - Venous thrombosis [Recovering/Resolving]
  - Cough [Unknown]
  - Pain in extremity [Unknown]
  - Second primary malignancy [Unknown]

NARRATIVE: CASE EVENT DATE: 20140601
